FAERS Safety Report 8458595-7 (Version None)
Quarter: 2012Q2

REPORT INFORMATION
  Report Type: 
  Country: None (occurrence: None)
  Receive Date: 20120622
  Receipt Date: 20120612
  Transmission Date: 20120825
  Serious: Yes (Hospitalization)
  Sender: FDA-Public Use
  Company Number: DE-FRI-1000031387

PATIENT
  Sex: Female
  Weight: 65 kg

DRUGS (1)
  1. MEMANTINE HCL [Suspect]
     Indication: DEMENTIA ALZHEIMER'S TYPE
     Dosage: 10 MG
     Route: 048
     Dates: start: 20120417, end: 20120516

REACTIONS (5)
  - PANIC ATTACK [None]
  - FEAR [None]
  - NAUSEA [None]
  - VOMITING [None]
  - DIZZINESS [None]
